FAERS Safety Report 15422006 (Version 8)
Quarter: 2020Q3

REPORT INFORMATION
  Report Type: Spontaneous
  Country: BR (occurrence: BR)
  Receive Date: 20180924
  Receipt Date: 20200701
  Transmission Date: 20201102
  Serious: Yes (Hospitalization)
  Sender: FDA-Public Use
  Company Number: BR-BIOMARINAP-BR-2018-119994

PATIENT
  Age: 11 Year
  Sex: Female
  Weight: 43 kg

DRUGS (3)
  1. ENALAPRIL [Concomitant]
     Active Substance: ENALAPRIL
     Indication: BLOOD PRESSURE MANAGEMENT
     Dosage: 2.5 MILLIGRAM, BID
  2. NAGLAZYME [Suspect]
     Active Substance: GALSULFASE
     Indication: MUCOPOLYSACCHARIDOSIS VI
     Dosage: UNK UNK, QW
     Route: 042
     Dates: start: 20080115
  3. ENALAPRIL [Concomitant]
     Active Substance: ENALAPRIL
     Indication: MITRAL VALVE PROLAPSE

REACTIONS (9)
  - Obstructive airways disorder [Unknown]
  - Hypersensitivity [Unknown]
  - Knee deformity [Recovering/Resolving]
  - Laryngeal oedema [Unknown]
  - Cervical cord compression [Recovering/Resolving]
  - Infection [Unknown]
  - Product dose omission issue [Unknown]
  - Body temperature increased [Unknown]
  - Arthralgia [Recovering/Resolving]

NARRATIVE: CASE EVENT DATE: 20180817
